FAERS Safety Report 6921083-0 (Version None)
Quarter: 2010Q3

REPORT INFORMATION
  Report Type: 
  Country: None (occurrence: None)
  Receive Date: 20100812
  Receipt Date: 20100802
  Transmission Date: 20110219
  Serious: Yes (Other)
  Sender: FDA-Public Use
  Company Number: ES-WATSON-2010-10545

PATIENT
  Age: 80 Year
  Sex: Male

DRUGS (1)
  1. CYCLOPHOSPHAMIDE [Suspect]
     Indication: PROPHYLAXIS AGAINST TRANSPLANT REJECTION
     Dosage: UNK
     Route: 065
     Dates: start: 19920101

REACTIONS (4)
  - BRADYKINESIA [None]
  - MUSCLE RIGIDITY [None]
  - PARKINSONISM [None]
  - TREMOR [None]
